FAERS Safety Report 19587799 (Version 1)
Quarter: 2021Q3

REPORT INFORMATION
  Report Type: Spontaneous
  Country: US (occurrence: US)
  Receive Date: 20210716
  Receipt Date: 20210716
  Transmission Date: 20211014
  Serious: No
  Sender: FDA-Public Use
  Company Number: None

PATIENT
  Age: 38 Year
  Sex: Male

DRUGS (3)
  1. FENBEN TABLETS [Suspect]
     Active Substance: FENBENDAZOLE
  2. FENBEN TABLETS [Suspect]
     Active Substance: FENBENDAZOLE
     Indication: DRUG THERAPY
     Route: 048
     Dates: start: 20210204, end: 20210623
  3. FENBEN BIO CAPSULES [Suspect]
     Active Substance: FENBENDAZOLE

REACTIONS (3)
  - Diarrhoea [None]
  - Jaundice [None]
  - Abdominal pain upper [None]

NARRATIVE: CASE EVENT DATE: 20210622
